FAERS Safety Report 20098114 (Version 1)
Quarter: 2021Q4

REPORT INFORMATION
  Report Type: Spontaneous
  Country: CA (occurrence: CA)
  Receive Date: 20211122
  Receipt Date: 20211122
  Transmission Date: 20220303
  Serious: Yes (Other)
  Sender: FDA-Public Use
  Company Number: CA-ALLERGAN-2139337US

PATIENT
  Sex: Female

DRUGS (3)
  1. BOTOX COSMETIC [Suspect]
     Active Substance: ONABOTULINUMTOXINA
     Indication: Acne
     Dosage: UNK UNK, SINGLE
  2. UNSPECIFIED INGREDIENT [Suspect]
     Active Substance: UNSPECIFIED INGREDIENT
     Indication: Acne
     Dosage: UNK
  3. HYALURONIC ACID [Suspect]
     Active Substance: HYALURONIC ACID
     Indication: Acne

REACTIONS (9)
  - Acne [Unknown]
  - Acne cystic [Unknown]
  - Skin irritation [Unknown]
  - Swelling [Unknown]
  - Patient dissatisfaction with treatment [Unknown]
  - Erythema [Unknown]
  - Off label use [Unknown]
  - Product origin unknown [Unknown]
  - Product quality issue [Unknown]
